FAERS Safety Report 15114557 (Version 2)
Quarter: 2018Q3

REPORT INFORMATION
  Report Type: Report from Study
  Country: None (occurrence: US)
  Receive Date: 20180706
  Receipt Date: 20180824
  Transmission Date: 20181010
  Serious: No
  Sender: FDA-Public Use
  Company Number: US-ABBVIE-18K-163-2406559-00

PATIENT
  Age: 56 Year
  Sex: Female
  Weight: 90.8 kg

DRUGS (3)
  1. INFLUENZA VACCINE [Suspect]
     Active Substance: INFLUENZA VIRUS VACCINE
     Indication: PRODUCT USED FOR UNKNOWN INDICATION
     Route: 065
     Dates: start: 201710
  2. HUMIRA [Suspect]
     Active Substance: ADALIMUMAB
     Indication: RHEUMATOID ARTHRITIS
     Route: 058
  3. PNEUMOCOCCAL VACCINE POLYVALENT NOS [Suspect]
     Active Substance: PNEUMOCOCCAL VACCINE POLYVALENT
     Indication: PRODUCT USED FOR UNKNOWN INDICATION
     Route: 065
     Dates: start: 201710

REACTIONS (24)
  - Rheumatoid nodule [Unknown]
  - Gait disturbance [Unknown]
  - Dysstasia [Unknown]
  - Tremor [Unknown]
  - Injection site erythema [Recovering/Resolving]
  - Hypersensitivity [Unknown]
  - Joint swelling [Not Recovered/Not Resolved]
  - Sinus headache [Not Recovered/Not Resolved]
  - Sneezing [Unknown]
  - Injection site swelling [Recovering/Resolving]
  - Adverse event [Not Recovered/Not Resolved]
  - Grip strength decreased [Unknown]
  - Rheumatoid arthritis [Unknown]
  - Sensitivity to weather change [Unknown]
  - Allergy to vaccine [Recovering/Resolving]
  - Bronchitis [Unknown]
  - Back pain [Unknown]
  - Spinal column stenosis [Unknown]
  - Migraine [Unknown]
  - Hypertension [Unknown]
  - Rhinorrhoea [Unknown]
  - Sinus disorder [Unknown]
  - Dry eye [Unknown]
  - Eye pain [Unknown]

NARRATIVE: CASE EVENT DATE: 201710
